FAERS Safety Report 24642637 (Version 2)
Quarter: 2024Q4

REPORT INFORMATION
  Report Type: Spontaneous
  Country: US (occurrence: US)
  Receive Date: 20241120
  Receipt Date: 20241219
  Transmission Date: 20250114
  Serious: Yes (Other)
  Sender: ABBVIE
  Company Number: US-ABBVIE-6006845

PATIENT
  Age: 38 Year
  Sex: Female

DRUGS (2)
  1. HUMIRA [Suspect]
     Active Substance: ADALIMUMAB
     Indication: Crohn^s disease
     Route: 058
     Dates: start: 20240905
  2. HUMIRA [Suspect]
     Active Substance: ADALIMUMAB
     Route: 058

REACTIONS (7)
  - Intestinal obstruction [Recovered/Resolved]
  - Brain fog [Unknown]
  - Arthralgia [Unknown]
  - Therapeutic response shortened [Unknown]
  - Musculoskeletal stiffness [Unknown]
  - Product storage error [Unknown]
  - Stenosis [Unknown]

NARRATIVE: CASE EVENT DATE: 20241111
